FAERS Safety Report 5169218-7 (Version None)
Quarter: 2006Q4

REPORT INFORMATION
  Report Type: 
  Country: None (occurrence: None)
  Receive Date: 20061201
  Receipt Date: 20061120
  Transmission Date: 20070319
  Serious: Yes (Other)
  Sender: FDA-Public Use
  Company Number: 2006144200

PATIENT
  Sex: Male

DRUGS (1)
  1. LYRICA [Suspect]
     Indication: CANCER PAIN
     Dosage: 150 MG (75 MG, 2 IN 1 D), ORAL
     Route: 048

REACTIONS (1)
  - ANAPHYLACTIC REACTION [None]
